FAERS Safety Report 6594024-6 (Version None)
Quarter: 2010Q1

REPORT INFORMATION
  Report Type: 
  Country: None (occurrence: None)
  Receive Date: 20100212
  Receipt Date: 20100126
  Transmission Date: 20100710
  Serious: Yes (Other)
  Sender: FDA-Public Use
  Company Number: 2010SP005652

PATIENT
  Age: 52 Year
  Sex: Female

DRUGS (2)
  1. REMERON [Suspect]
     Indication: DEPRESSION
     Dosage: 15 MG; QD; PO
     Route: 048
     Dates: start: 20100105
  2. REMERON [Suspect]
     Indication: INSOMNIA
     Dosage: 15 MG; QD; PO
     Route: 048
     Dates: start: 20100105

REACTIONS (2)
  - DELUSION [None]
  - HOMICIDAL IDEATION [None]
